FAERS Safety Report 14802475 (Version 1)
Quarter: 2018Q2

REPORT INFORMATION
  Report Type: Spontaneous
  Country: PL (occurrence: PL)
  Receive Date: 20180424
  Receipt Date: 20180424
  Transmission Date: 20180711
  Serious: Yes (Death, Life-Threatening, Hospitalization, Disabling, Other)
  Sender: FDA-Public Use
  Company Number: PL-MYLANLABS-2018M1025022

PATIENT
  Age: 52 Year
  Sex: Female

DRUGS (3)
  1. COLISTIN [Suspect]
     Active Substance: COLISTIN
     Indication: KLEBSIELLA INFECTION
     Dosage: UNK
  2. RIFAMPICIN [Suspect]
     Active Substance: RIFAMPIN
     Indication: KLEBSIELLA INFECTION
     Dosage: UNK
  3. CLOXACILINA /00012001/ [Suspect]
     Active Substance: CLOXACILLIN
     Indication: KLEBSIELLA INFECTION
     Dosage: UNK

REACTIONS (2)
  - Drug ineffective [Fatal]
  - Death [Fatal]
